FAERS Safety Report 25756190 (Version 1)
Quarter: 2025Q3

REPORT INFORMATION
  Report Type: Spontaneous
  Country: US (occurrence: None)
  Receive Date: 20250902
  Receipt Date: 20250902
  Transmission Date: 20251021
  Serious: Yes (Life-Threatening, Hospitalization, Disabling, Other)
  Sender: FDA-CTU
  Company Number: None

PATIENT
  Age: 57 Year
  Sex: Female
  Weight: 75.6 kg

DRUGS (3)
  1. KLONOPIN [Suspect]
     Active Substance: CLONAZEPAM
     Indication: Epilepsy
     Dosage: OTHER QUANTITY : 1 TABLET(S)?FREQUENCY : 3 TIMES A DAY?
     Route: 048
  2. Klonopin Titrating Off + X-Copri Titrating on [Concomitant]
  3. X-Copri Titrating on [Concomitant]

REACTIONS (8)
  - Fatigue [None]
  - Generalised tonic-clonic seizure [None]
  - Respiratory arrest [None]
  - Coma [None]
  - CADASIL [None]
  - Impaired work ability [None]
  - Impaired driving ability [None]
  - Sexual abuse [None]

NARRATIVE: CASE EVENT DATE: 20250618
